FAERS Safety Report 6764329-4 (Version None)
Quarter: 2010Q2

REPORT INFORMATION
  Report Type: 
  Country: None (occurrence: None)
  Receive Date: 20100608
  Receipt Date: 20100528
  Transmission Date: 20101027
  Serious: Yes (Hospitalization)
  Sender: FDA-Public Use
  Company Number: PHO-2009-002

PATIENT
  Age: 62 Year
  Sex: Male

DRUGS (4)
  1. PHOTOFRIN [Suspect]
     Indication: BARRETT'S OESOPHAGUS
     Dosage: 2 MG/KG (165 MG); IV ONE INJECTION
     Route: 042
     Dates: start: 20090210
  2. PHOTOFRIN [Suspect]
     Indication: OESOPHAGEAL DYSPLASIA
     Dosage: 2 MG/KG (165 MG); IV ONE INJECTION
     Route: 042
     Dates: start: 20090210
  3. NEXIUM (ESOMEPRAZOLE MAGNESIUM TRIHYDRATE AND ESOMEPRAZOLE SODIUM) [Concomitant]
  4. METFORMIN HCL [Concomitant]

REACTIONS (4)
  - ATRIOVENTRICULAR BLOCK FIRST DEGREE [None]
  - BRADYCARDIA [None]
  - HYPOTENSION [None]
  - SYNCOPE [None]
